FAERS Safety Report 9125586 (Version 1)
Quarter: 2013Q1

REPORT INFORMATION
  Report Type: Spontaneous
  Country: FR (occurrence: FR)
  Receive Date: 20130117
  Receipt Date: 20130117
  Transmission Date: 20140127
  Serious: Yes (Hospitalization)
  Sender: FDA-Public Use
  Company Number: FR-ASTRAZENECA-2013SE01901

PATIENT
  Age: 73 Year
  Sex: Male

DRUGS (2)
  1. XYLOCARD [Suspect]
     Indication: BIOPSY BONE MARROW
     Dosage: 50 MG/ML, 1G ONCE/SINGLE ADMINISTRATION
     Route: 058
     Dates: start: 20121207, end: 20121207
  2. LIDOCAINE [Suspect]
     Indication: BIOPSY BONE MARROW
     Dosage: 10MG/ML
     Route: 065

REACTIONS (6)
  - Overdose [Unknown]
  - Dysarthria [Recovered/Resolved]
  - Hypertension [Recovered/Resolved]
  - Myoclonus [Recovered/Resolved]
  - Loss of consciousness [Recovered/Resolved]
  - Wrong drug administered [Recovered/Resolved]
